FAERS Safety Report 16561515 (Version 1)
Quarter: 2019Q3

REPORT INFORMATION
  Report Type: Report from Study
  Country: DE (occurrence: DE)
  Receive Date: 20190711
  Receipt Date: 20190711
  Transmission Date: 20191004
  Serious: Yes (Death, Hospitalization)
  Sender: FDA-Public Use
  Company Number: DE-PFIZER INC-2019293457

PATIENT
  Age: 68 Year
  Sex: Female
  Weight: 95 kg

DRUGS (7)
  1. ACIC [ACICLOVIR] [Concomitant]
     Indication: PLEURAL EFFUSION
     Dosage: 5 MG, UNK
     Route: 048
     Dates: start: 20100414, end: 20100421
  2. PACLITAXEL. [Suspect]
     Active Substance: PACLITAXEL
     Indication: BREAST CANCER METASTATIC
     Dosage: 80 MG/M2, WEEKLY
     Route: 042
     Dates: start: 20100506, end: 20100819
  3. ACIC [ACICLOVIR] [Concomitant]
     Indication: HERPES ZOSTER
  4. BEVACIZUMAB. [Suspect]
     Active Substance: BEVACIZUMAB
     Indication: BREAST CANCER METASTATIC
     Dosage: 980 MG, EVERY 3 WEEKS
     Route: 042
     Dates: start: 20100506, end: 20100805
  5. BISOPROLOL [Concomitant]
     Active Substance: BISOPROLOL
     Dates: start: 20001201, end: 20100917
  6. TAVOR (LORAZEPAM) [Concomitant]
     Active Substance: LORAZEPAM
     Indication: DEPRESSION
     Route: 048
     Dates: start: 200803
  7. LERCANIDIPINE [Concomitant]
     Active Substance: LERCANIDIPINE
     Dates: start: 20001201, end: 20100917

REACTIONS (6)
  - Cerebral infarction [Recovered/Resolved]
  - Pleural effusion [Recovering/Resolving]
  - Respiratory failure [Fatal]
  - Cerebrovascular accident [Recovered/Resolved]
  - Neoplasm progression [Fatal]
  - Pneumonia [Fatal]

NARRATIVE: CASE EVENT DATE: 20100812
